FAERS Safety Report 10851264 (Version 1)
Quarter: 2015Q1

REPORT INFORMATION
  Report Type: Spontaneous
  Country: None (occurrence: US)
  Receive Date: 20150222
  Receipt Date: 20150222
  Transmission Date: 20150721
  Serious: No
  Sender: FDA-Public Use
  Company Number: US-ALLERGAN-1407838US

PATIENT
  Age: 60 Year
  Sex: Female

DRUGS (2)
  1. SYNTHROID [Concomitant]
     Active Substance: LEVOTHYROXINE SODIUM
     Indication: HYPOTHYROIDISM
     Dosage: UNK
     Route: 048
  2. BOTOX COSMETIC [Suspect]
     Active Substance: ONABOTULINUMTOXINA
     Indication: SKIN WRINKLING
     Dosage: 6 UNITS, SINGLE
     Dates: start: 20140408, end: 20140408

REACTIONS (12)
  - Rhinorrhoea [Recovered/Resolved]
  - Feeling hot [Unknown]
  - Oropharyngeal pain [Unknown]
  - Fatigue [Unknown]
  - Feeling cold [Unknown]
  - Muscle tightness [Unknown]
  - Off label use [Unknown]
  - Myalgia [Unknown]
  - Influenza like illness [Unknown]
  - Chest discomfort [Recovering/Resolving]
  - Sensory disturbance [Unknown]
  - Fatigue [Not Recovered/Not Resolved]

NARRATIVE: CASE EVENT DATE: 20140409
